FAERS Safety Report 18086761 (Version 12)
Quarter: 2021Q3

REPORT INFORMATION
  Report Type: Spontaneous
  Country: US (occurrence: US)
  Receive Date: 20200729
  Receipt Date: 20210820
  Transmission Date: 20211014
  Serious: Yes (Other)
  Sender: FDA-Public Use
  Company Number: US-PFIZER INC-2020286818

PATIENT
  Age: 79 Year
  Sex: Female

DRUGS (5)
  1. LYRICA [Suspect]
     Active Substance: PREGABALIN
     Dosage: 175 MG, 2X/DAY
  2. LYRICA [Suspect]
     Active Substance: PREGABALIN
     Dosage: 300 MG
  3. LYRICA [Suspect]
     Active Substance: PREGABALIN
     Dosage: 1 DF, 2X/DAY (1 IN THE MORNING AND 1 IN THE EVENING)
  4. LYRICA [Suspect]
     Active Substance: PREGABALIN
     Indication: DIABETIC NEUROPATHY
     Dosage: 175 MG, 1X/DAY AT NIGHT
  5. LYRICA [Suspect]
     Active Substance: PREGABALIN
     Dosage: 1 DF, 3X/DAY (1 IN THE MORNING 1 IN THE AFTERNOON AND 1 IN THE EVENING)

REACTIONS (6)
  - Drug ineffective [Unknown]
  - Abdominal discomfort [Unknown]
  - Limb discomfort [Unknown]
  - Off label use [Unknown]
  - Upper limb fracture [Unknown]
  - Road traffic accident [Unknown]
